FAERS Safety Report 16686443 (Version 1)
Quarter: 2019Q3

REPORT INFORMATION
  Report Type: Spontaneous
  Country: US (occurrence: US)
  Receive Date: 20190809
  Receipt Date: 20190809
  Transmission Date: 20191004
  Serious: No
  Sender: FDA-Public Use
  Company Number: US-ASTRAZENECA-2019SF01363

PATIENT
  Age: 63 Year
  Sex: Male

DRUGS (3)
  1. HUMIRA [Suspect]
     Active Substance: ADALIMUMAB
     Indication: RHEUMATOID ARTHRITIS
     Dosage: 40 MG ,1 IN 1 WEEK
     Route: 058
     Dates: start: 20190622
  2. HUMIRA [Suspect]
     Active Substance: ADALIMUMAB
     Indication: RHEUMATOID ARTHRITIS
     Dosage: 40 MG ,1 IN 2 WEEK
     Route: 058
     Dates: start: 20190322, end: 2019
  3. CRESTOR [Suspect]
     Active Substance: ROSUVASTATIN CALCIUM
     Route: 048

REACTIONS (16)
  - Rash [Recovered/Resolved]
  - Arthralgia [Recovered/Resolved]
  - Inflammation [Not Recovered/Not Resolved]
  - Blood cholesterol increased [Unknown]
  - Gait disturbance [Unknown]
  - Joint injury [Unknown]
  - Night sweats [Unknown]
  - Erythema [Unknown]
  - Fatigue [Unknown]
  - Abdominal discomfort [Unknown]
  - Nausea [Unknown]
  - Anxiety [Unknown]
  - Asthenia [Unknown]
  - Joint swelling [Recovered/Resolved]
  - Pain in extremity [Unknown]
  - Depression [Unknown]

NARRATIVE: CASE EVENT DATE: 2019
